FAERS Safety Report 9290507 (Version 1)
Quarter: 2013Q2

REPORT INFORMATION
  Report Type: Spontaneous
  Country: US (occurrence: US)
  Receive Date: 20130514
  Receipt Date: 20130514
  Transmission Date: 20140414
  Serious: Yes (Other)
  Sender: FDA-Public Use
  Company Number: US-BRACCO-007997

PATIENT
  Age: 50 Year
  Sex: Male

DRUGS (5)
  1. PROHANCE [Suspect]
     Indication: NUCLEAR MAGNETIC RESONANCE IMAGING BRAIN
     Route: 042
     Dates: start: 20120504, end: 20120504
  2. PROHANCE [Suspect]
     Indication: HEADACHE
     Route: 042
     Dates: start: 20120504, end: 20120504
  3. PROHANCE [Suspect]
     Indication: VIITH NERVE PARALYSIS
     Route: 042
     Dates: start: 20120504, end: 20120504
  4. PROHANCE [Suspect]
     Indication: VISION BLURRED
     Route: 042
     Dates: start: 20120504, end: 20120504
  5. PROHANCE [Suspect]
     Indication: HYPOAESTHESIA
     Route: 042
     Dates: start: 20120504, end: 20120504

REACTIONS (1)
  - Hypersensitivity [Recovered/Resolved]
